FAERS Safety Report 9422258 (Version 2)
Quarter: 2013Q3

REPORT INFORMATION
  Report Type: Spontaneous
  Country: US (occurrence: US)
  Receive Date: 20130726
  Receipt Date: 20130816
  Transmission Date: 20140515
  Serious: No
  Sender: FDA-Public Use
  Company Number: US-009507513-1307USA005182

PATIENT
  Age: 86 Year
  Sex: Male

DRUGS (6)
  1. MIRALAX [Suspect]
     Indication: CONSTIPATION PROPHYLAXIS
     Dosage: 17 G, PRN
     Route: 048
     Dates: start: 201304
  2. MIRALAX [Suspect]
     Indication: MEDICAL OBSERVATION
  3. AVODART [Concomitant]
     Indication: PROSTATIC DISORDER
     Dosage: UNK, UNKNOWN
  4. PRILOSEC [Concomitant]
     Indication: GASTROOESOPHAGEAL REFLUX DISEASE
     Dosage: UNK, UNKNOWN
  5. FLOMAX (TAMSULOSIN HYDROCHLORIDE) [Concomitant]
     Indication: BLADDER DISORDER
     Dosage: UNK, UNKNOWN
  6. ATORVASTATIN [Concomitant]
     Indication: BLOOD CHOLESTEROL INCREASED
     Dosage: UNK, UNKNOWN

REACTIONS (2)
  - Bowel movement irregularity [Not Recovered/Not Resolved]
  - Diarrhoea [Unknown]
